FAERS Safety Report 9337429 (Version 1)
Quarter: 2013Q2

REPORT INFORMATION
  Report Type: Spontaneous
  Country: CH (occurrence: CH)
  Receive Date: 20130607
  Receipt Date: 20130607
  Transmission Date: 20140414
  Serious: Yes (Death, Life-Threatening)
  Sender: FDA-Public Use
  Company Number: CH-ROXANE LABORATORIES, INC.-2013-RO-00905RO

PATIENT
  Age: 35 Year
  Sex: Female

DRUGS (7)
  1. METHADONE [Suspect]
  2. CITALOPRAM [Suspect]
  3. LORAZEPAM [Suspect]
  4. COCAINE [Suspect]
  5. OXAZEPAM [Suspect]
  6. ACETAMINOPHEN [Concomitant]
  7. CAFFEINE [Concomitant]

REACTIONS (2)
  - Wound haemorrhage [Fatal]
  - Vascular pseudoaneurysm ruptured [Unknown]
